FAERS Safety Report 16480386 (Version 1)
Quarter: 2019Q2

REPORT INFORMATION
  Report Type: Report from Study
  Country: GB (occurrence: GB)
  Receive Date: 20190626
  Receipt Date: 20190626
  Transmission Date: 20190711
  Serious: Yes (Hospitalization, Other)
  Sender: FDA-Public Use
  Company Number: PHHO2019GB006553

PATIENT
  Age: 14 Year
  Sex: Female
  Weight: 66.9 kg

DRUGS (2)
  1. AIN457 [Suspect]
     Active Substance: SECUKINUMAB
     Indication: JUVENILE IDIOPATHIC ARTHRITIS
     Dosage: 150MG/1ML
     Route: 058
     Dates: start: 20181023
  2. METOJECT [Suspect]
     Active Substance: METHOTREXATE SODIUM
     Indication: JUVENILE IDIOPATHIC ARTHRITIS
     Dosage: 15 MG, WEEKLY
     Route: 058
     Dates: start: 20180626, end: 20180721

REACTIONS (1)
  - Varicella [Unknown]

NARRATIVE: CASE EVENT DATE: 20190618
